FAERS Safety Report 16627438 (Version 5)
Quarter: 2021Q4

REPORT INFORMATION
  Report Type: Spontaneous
  Country: US (occurrence: US)
  Receive Date: 20190724
  Receipt Date: 20211209
  Transmission Date: 20220303
  Serious: No
  Sender: FDA-Public Use
  Company Number: US-PFIZER INC-2018523139

PATIENT
  Age: 68 Year
  Sex: Female

DRUGS (3)
  1. LYRICA [Suspect]
     Active Substance: PREGABALIN
     Indication: Polyneuropathy
     Dosage: 600 MG, DAILY (200 MG, 1 CAPSULE IN AM AND 2 CAPSULES AT HS)
     Route: 048
  2. LYRICA [Suspect]
     Active Substance: PREGABALIN
     Indication: Neuropathy peripheral
     Dosage: 200 MG (MORNING)
     Route: 048
     Dates: start: 20200429
  3. LYRICA [Suspect]
     Active Substance: PREGABALIN
     Indication: Diabetes mellitus

REACTIONS (2)
  - Off label use [Unknown]
  - Osteoporosis [Unknown]
